FAERS Safety Report 8584686-6 (Version None)
Quarter: 2012Q3

REPORT INFORMATION
  Report Type: 
  Country: None (occurrence: None)
  Receive Date: 20120810
  Receipt Date: 20120727
  Transmission Date: 20120928
  Serious: Yes (Hospitalization)
  Sender: FDA-Public Use
  Company Number: DE-FRI-1000031483

PATIENT
  Age: 76 Year
  Sex: Female
  Weight: 100 kg

DRUGS (4)
  1. PIPAMPERONE [Concomitant]
     Indication: SLEEP APNOEA SYNDROME
     Dosage: 120 MG
     Dates: start: 20111101, end: 20120505
  2. MEMANTINE HCL [Suspect]
     Indication: DEMENTIA ALZHEIMER'S TYPE
     Dosage: 5 MG
     Route: 048
     Dates: start: 20120412
  3. RISPERIDONE [Concomitant]
     Indication: DELUSION
     Dosage: 1.5 MG
     Dates: start: 20101004, end: 20120505
  4. MEMANTINE HCL [Suspect]
     Dosage: 20 MG
     Route: 048
     Dates: end: 20120505

REACTIONS (3)
  - ATRIAL FIBRILLATION [None]
  - RENAL DISORDER [None]
  - ARRHYTHMIA [None]
